FAERS Safety Report 7487259-1 (Version None)
Quarter: 2011Q2

REPORT INFORMATION
  Report Type: 
  Country: None (occurrence: None)
  Receive Date: 20110518
  Receipt Date: 20110503
  Transmission Date: 20111010
  Serious: Yes (Other)
  Sender: FDA-Public Use
  Company Number: US-JNJFOC-20110501621

PATIENT
  Sex: Female
  Weight: 102.06 kg

DRUGS (14)
  1. IMURAN [Concomitant]
     Indication: RHEUMATOID ARTHRITIS
     Route: 048
  2. VITAMIN B [Concomitant]
     Indication: MEDICAL DIET
     Route: 048
  3. DIAZEPAM [Concomitant]
     Indication: INSOMNIA
     Dates: start: 20100101
  4. ZOCOR [Concomitant]
     Indication: BLOOD CHOLESTEROL INCREASED
     Route: 048
     Dates: start: 20080101
  5. LIDODERM [Concomitant]
     Indication: PAIN
     Route: 062
     Dates: start: 20101001
  6. ASPIRIN [Concomitant]
     Route: 048
     Dates: start: 20080101
  7. CLARITIN [Concomitant]
     Indication: MULTIPLE ALLERGIES
     Route: 048
  8. REMICADE [Suspect]
     Indication: RHEUMATOID ARTHRITIS
     Route: 042
     Dates: start: 20090101
  9. METHOTREXATE [Concomitant]
     Indication: RHEUMATOID ARTHRITIS
     Route: 048
  10. FOLIC ACID [Concomitant]
     Indication: MEDICAL DIET
  11. PROTONIX [Concomitant]
     Indication: GASTROOESOPHAGEAL REFLUX DISEASE
     Route: 048
     Dates: start: 20080101
  12. PREDNISONE [Concomitant]
     Indication: RHEUMATOID ARTHRITIS
     Route: 048
     Dates: start: 20050101
  13. AVINZA [Concomitant]
     Route: 048
     Dates: start: 20080101
  14. VICODIN [Concomitant]
     Indication: PAIN
     Route: 048
     Dates: start: 20050101

REACTIONS (7)
  - HYPERTENSION [None]
  - PRURITUS [None]
  - ANXIETY [None]
  - WEIGHT INCREASED [None]
  - OEDEMA PERIPHERAL [None]
  - VAGINAL HAEMORRHAGE [None]
  - UTERINE DISORDER [None]
